FAERS Safety Report 6980490-0 (Version None)
Quarter: 2010Q3

REPORT INFORMATION
  Report Type: 
  Country: None (occurrence: None)
  Receive Date: 20100914
  Receipt Date: 20100830
  Transmission Date: 20110219
  Serious: Yes (Other)
  Sender: FDA-Public Use
  Company Number: PHHY2010US58457

PATIENT
  Age: 63 Year
  Sex: Female

DRUGS (3)
  1. METOPROLOL TARTRATE [Suspect]
     Dosage: 50 MG, DAILY
  2. FUROSEMIDE [Concomitant]
     Indication: ARTHRALGIA
     Dosage: 40 MG, DAILY
  3. ACETAMINOPHEN [Concomitant]
     Indication: ARTHRALGIA
     Dosage: AS NEEDED

REACTIONS (9)
  - ADRENALECTOMY [None]
  - BLOOD CHOLESTEROL INCREASED [None]
  - FATIGUE [None]
  - GANGLIONEUROMA [None]
  - GLOMERULONEPHRITIS MEMBRANOUS [None]
  - NAUSEA [None]
  - OEDEMA PERIPHERAL [None]
  - PROTEINURIA [None]
  - WEIGHT INCREASED [None]
